FAERS Safety Report 12724251 (Version 1)
Quarter: 2016Q3

REPORT INFORMATION
  Report Type: Report from Study
  Country: ES (occurrence: ES)
  Receive Date: 20160908
  Receipt Date: 20160908
  Transmission Date: 20161109
  Serious: Yes (Life-Threatening, Hospitalization)
  Sender: FDA-Public Use
  Company Number: ES-PFIZER INC-2016417483

PATIENT
  Age: 69 Year
  Sex: Male

DRUGS (16)
  1. EFFERALGAN [Interacting]
     Active Substance: ACETAMINOPHEN
     Dosage: UNK
     Route: 065
  2. FLUTICASONE/SALMETEROL [Concomitant]
     Dosage: UNK
  3. METAMIZOLE [Concomitant]
     Active Substance: METAMIZOLE
     Dosage: UNK
  4. AMLODIPINE [Concomitant]
     Active Substance: AMLODIPINE BESYLATE
     Dosage: UNK
  5. METFORMIN HYDROCHLORIDE/SITAGLIPTIN PHOSPHATE [Concomitant]
     Dosage: UNK
  6. ALDOCUMAR [Interacting]
     Active Substance: WARFARIN SODIUM
     Indication: ATRIAL FIBRILLATION
     Dosage: UNK
     Route: 048
     Dates: end: 20150527
  7. TRAMADOL. [Interacting]
     Active Substance: TRAMADOL
     Dosage: UNK
  8. FUROSEMIDE. [Concomitant]
     Active Substance: FUROSEMIDE
     Dosage: UNK
  9. LORMETAZEPAM [Concomitant]
     Active Substance: LORMETAZEPAM
     Dosage: UNK
  10. TIOTROPIUM [Concomitant]
     Active Substance: TIOTROPIUM
     Dosage: UNK
  11. SALBUTAMOL [Concomitant]
     Active Substance: ALBUTEROL
     Dosage: UNK
  12. ESCITALOPRAM [Interacting]
     Active Substance: ESCITALOPRAM OXALATE
     Dosage: 10 MG, DAILY
     Route: 048
     Dates: start: 20150121, end: 20150528
  13. SECALIP [Interacting]
     Active Substance: FENOFIBRATE
     Dosage: UNK
     Route: 065
  14. NEBIVOLOL. [Concomitant]
     Active Substance: NEBIVOLOL
     Dosage: UNK
  15. TRANGOREX [Suspect]
     Active Substance: AMIODARONE HYDROCHLORIDE
     Dosage: 200 MG, DAILY
     Route: 048
     Dates: start: 201502
  16. OMEPRAZOLE. [Interacting]
     Active Substance: OMEPRAZOLE
     Dosage: UNK
     Route: 065

REACTIONS (2)
  - Upper gastrointestinal haemorrhage [Recovered/Resolved]
  - Drug interaction [Recovered/Resolved]

NARRATIVE: CASE EVENT DATE: 20150527
